FAERS Safety Report 9359188 (Version 1)
Quarter: 2013Q2

REPORT INFORMATION
  Report Type: Spontaneous
  Country: JP (occurrence: None)
  Receive Date: 20130617
  Receipt Date: 20130617
  Transmission Date: 20140414
  Serious: Yes (Hospitalization)
  Sender: FDA-Public Use
  Company Number: 148682

PATIENT
  Age: 62 Year
  Sex: Male

DRUGS (1)
  1. CISPLATIN [Suspect]
     Indication: GASTRIC CANCER
     Dosage: 110MG + 80MG (TOTAL 4 CYCLES)

REACTIONS (5)
  - Coronary artery thrombosis [None]
  - Acute myocardial infarction [None]
  - Leukocytosis [None]
  - Anaemia [None]
  - Renal impairment [None]
